FAERS Safety Report 20228162 (Version 2)
Quarter: 2022Q1

REPORT INFORMATION
  Report Type: Spontaneous
  Country: KR (occurrence: KR)
  Receive Date: 20211224
  Receipt Date: 20220128
  Transmission Date: 20220423
  Serious: Yes (Other)
  Sender: FDA-Public Use
  Company Number: KR-LUNDBECK-DKLU3042146

PATIENT
  Sex: Male
  Weight: 69 kg

DRUGS (3)
  1. ESCITALOPRAM OXALATE [Suspect]
     Active Substance: ESCITALOPRAM OXALATE
     Indication: Panic disorder
     Dosage: 5 MG, QD
     Route: 048
     Dates: start: 202107, end: 20211122
  2. ESCITALOPRAM OXALATE [Suspect]
     Active Substance: ESCITALOPRAM OXALATE
     Dosage: 10 MG, QD
     Route: 048
     Dates: start: 202002, end: 202107
  3. ALPRAZOLAM [Concomitant]
     Active Substance: ALPRAZOLAM
     Indication: Panic disorder
     Route: 048
     Dates: start: 202002, end: 202007

REACTIONS (2)
  - Erectile dysfunction [Recovering/Resolving]
  - Sperm concentration decreased [Not Recovered/Not Resolved]

NARRATIVE: CASE EVENT DATE: 20200601
